FAERS Safety Report 13463234 (Version 1)
Quarter: 2017Q2

REPORT INFORMATION
  Report Type: Spontaneous
  Country: PE (occurrence: PE)
  Receive Date: 20170420
  Receipt Date: 20170420
  Transmission Date: 20170830
  Serious: Yes (Other)
  Sender: FDA-Public Use
  Company Number: PE-PFIZER INC-2016347996

PATIENT
  Age: 84 Year
  Sex: Female

DRUGS (1)
  1. NORVASC [Suspect]
     Active Substance: AMLODIPINE BESYLATE
     Dosage: UNK

REACTIONS (8)
  - Renal failure [Unknown]
  - Angina pectoris [Unknown]
  - Cataract [Unknown]
  - Osteoarthritis [Unknown]
  - Drug dose omission [Unknown]
  - Labyrinthitis [Unknown]
  - Urinary tract disorder [Unknown]
  - Cardiac discomfort [Unknown]

NARRATIVE: CASE EVENT DATE: 201611
